FAERS Safety Report 14419705 (Version 1)
Quarter: 2018Q1

REPORT INFORMATION
  Report Type: Report from Study
  Country: US (occurrence: US)
  Receive Date: 20180122
  Receipt Date: 20180122
  Transmission Date: 20180509
  Serious: Yes (Other)
  Sender: FDA-Public Use
  Company Number: US-GILEAD-2018-0316959

PATIENT
  Age: 59 Year
  Sex: Female

DRUGS (1)
  1. AMBRISENTAN [Suspect]
     Active Substance: AMBRISENTAN
     Indication: PRODUCT USED FOR UNKNOWN INDICATION
     Dosage: 10 MG, QD
     Route: 065
     Dates: start: 20140410

REACTIONS (9)
  - Rhinorrhoea [Unknown]
  - Unevaluable event [Unknown]
  - Pulmonary arterial hypertension [Not Recovered/Not Resolved]
  - Orthopnoea [Not Recovered/Not Resolved]
  - Sneezing [Unknown]
  - Rhinalgia [Unknown]
  - Palpitations [Not Recovered/Not Resolved]
  - Oxygen consumption increased [Not Recovered/Not Resolved]
  - Dyspnoea [Not Recovered/Not Resolved]
